FAERS Safety Report 5679643-3 (Version None)
Quarter: 2008Q1

REPORT INFORMATION
  Report Type: 
  Country: None (occurrence: None)
  Receive Date: 20080325
  Receipt Date: 20080317
  Transmission Date: 20080703
  Serious: Yes (Hospitalization)
  Sender: FDA-Public Use
  Company Number: GB-ABBOTT-08P-167-0442825-00

PATIENT
  Age: 43 Year
  Sex: Female
  Weight: 73 kg

DRUGS (2)
  1. CLARITHROMYCIN [Suspect]
     Indication: LOWER RESPIRATORY TRACT INFECTION
     Dates: start: 20070205, end: 20070209
  2. EFALEX [Concomitant]
     Indication: PREMENSTRUAL SYNDROME

REACTIONS (3)
  - ABDOMINAL PAIN [None]
  - ABSCESS [None]
  - INTESTINAL PERFORATION [None]
